FAERS Safety Report 10306218 (Version 1)
Quarter: 2014Q3

REPORT INFORMATION
  Report Type: Spontaneous
  Country: US (occurrence: US)
  Receive Date: 20140715
  Receipt Date: 20140715
  Transmission Date: 20150326
  Serious: Yes (Other)
  Sender: FDA-Public Use
  Company Number: US-TEVA-494614USA

PATIENT
  Age: 69 Year
  Sex: Male

DRUGS (4)
  1. BICALUTAMIDE. [Suspect]
     Active Substance: BICALUTAMIDE
     Route: 048
  2. BICALUTAMIDE. [Suspect]
     Active Substance: BICALUTAMIDE
     Route: 048
  3. BICALUTAMIDE. [Suspect]
     Active Substance: BICALUTAMIDE
     Indication: PRIAPISM
     Route: 048
  4. BICALUTAMIDE. [Suspect]
     Active Substance: BICALUTAMIDE
     Route: 048

REACTIONS (5)
  - Prostate cancer [Recovering/Resolving]
  - Testicular atrophy [Recovered/Resolved]
  - Gynaecomastia [Recovered/Resolved]
  - Libido decreased [Recovered/Resolved]
  - Erectile dysfunction [Recovered/Resolved]
